FAERS Safety Report 19318828 (Version 1)
Quarter: 2021Q2

REPORT INFORMATION
  Report Type: Spontaneous
  Country: ES (occurrence: ES)
  Receive Date: 20210527
  Receipt Date: 20210527
  Transmission Date: 20210717
  Serious: Yes (Hospitalization)
  Sender: FDA-Public Use
  Company Number: ES-ROCHE-2832389

PATIENT
  Age: 75 Year
  Sex: Female

DRUGS (6)
  1. VENOFER [Suspect]
     Active Substance: IRON SUCROSE
     Indication: HEREDITARY HAEMORRHAGIC TELANGIECTASIA
     Dosage: 20 MG/ML INJECTABLE SOLUTION OR CONCENTRATE FOR SOLUTION FOR INFUSION, 5 VIALS OF 5 ML
     Route: 042
     Dates: start: 20200714, end: 20200729
  2. DIGOXINA [Concomitant]
     Active Substance: DIGOXIN
     Indication: ATRIAL FIBRILLATION
     Route: 048
     Dates: start: 201701
  3. BEVACIZUMAB. [Suspect]
     Active Substance: BEVACIZUMAB
     Indication: HEREDITARY HAEMORRHAGIC TELANGIECTASIA
     Route: 042
     Dates: start: 20191119, end: 20200729
  4. OMEPRAZOLE. [Concomitant]
     Active Substance: OMEPRAZOLE
     Route: 048
     Dates: start: 201007
  5. BISOPROLOL [Concomitant]
     Active Substance: BISOPROLOL
     Indication: ATRIAL FIBRILLATION
     Route: 048
     Dates: start: 201704
  6. RALOXIFENO [Concomitant]
     Route: 048
     Dates: start: 201712, end: 20200814

REACTIONS (2)
  - Asthenia [Recovering/Resolving]
  - Tremor [Not Recovered/Not Resolved]

NARRATIVE: CASE EVENT DATE: 20200729
